FAERS Safety Report 8179454-3 (Version None)
Quarter: 2012Q1

REPORT INFORMATION
  Report Type: 
  Country: None (occurrence: None)
  Receive Date: 20120302
  Receipt Date: 20120227
  Transmission Date: 20120608
  Serious: Yes (Death)
  Sender: FDA-Public Use
  Company Number: CHPA2012US003770

PATIENT
  Age: 39 Year
  Sex: Female

DRUGS (10)
  1. BENZONATATE [Suspect]
     Dosage: UNK,UNK
     Route: 048
  2. GABAPENTIN [Suspect]
     Dosage: UNK,UNK
     Route: 048
  3. OMEPRAZOLE [Suspect]
     Dosage: UNK,UNK
     Route: 048
  4. TRAMADOL HCL [Suspect]
     Dosage: UNK,UNK
     Route: 048
  5. FERROUS SULFATE TAB [Suspect]
     Dosage: UNK,UNK
     Route: 048
  6. FLUOXETINE [Suspect]
     Dosage: UNK,UNK
     Route: 048
  7. ETHANOL [Suspect]
     Dosage: UNK,UNK
     Route: 048
  8. VITAMIN D [Suspect]
     Dosage: UNK,UNK
     Route: 048
  9. ACETAMINOPHEN AND HYDROCODONE BITARTRATE [Suspect]
     Dosage: UNK,UNK
     Route: 048
  10. CHLORZOXAZONE [Suspect]
     Dosage: UNK,UNK
     Route: 048

REACTIONS (1)
  - COMPLETED SUICIDE [None]
